FAERS Safety Report 20471051 (Version 1)
Quarter: 2022Q1

REPORT INFORMATION
  Report Type: Spontaneous
  Country: US (occurrence: None)
  Receive Date: 20220211
  Receipt Date: 20220211
  Transmission Date: 20220423
  Serious: Yes (Other)
  Sender: FDA-Public Use
  Company Number: None

PATIENT
  Sex: Male

DRUGS (1)
  1. BENEFIX [Suspect]
     Active Substance: COAGULATION FACTOR IX RECOMBINANT HUMAN\ISOPROPYL ALCOHOL
     Indication: Acquired haemophilia
     Dosage: OTHER STRENGTH : 250 UNIT;?FREQUENCY : EVERY 2 HOURS; AS NEEDED?
     Route: 042
     Dates: start: 20210918

REACTIONS (2)
  - Haemorrhage [None]
  - Head injury [None]
